FAERS Safety Report 9696819 (Version 3)
Quarter: 2014Q1

REPORT INFORMATION
  Report Type: Report from Study
  Country: US (occurrence: GB)
  Receive Date: 20131119
  Receipt Date: 20140109
  Transmission Date: 20141002
  Serious: Yes (Other)
  Sender: FDA-Public Use
  Company Number: PHHY2013GB130036

PATIENT
  Age: 66 Year
  Sex: Male

DRUGS (7)
  1. IRINOTECAN [Suspect]
     Indication: COLORECTAL CANCER METASTATIC
  2. OXALIPLATIN [Suspect]
     Indication: COLORECTAL CANCER METASTATIC
  3. CAPECITABINE [Suspect]
     Indication: COLORECTAL CANCER METASTATIC
     Route: 065
  4. CALCIUM FOLINATE [Suspect]
     Indication: COLORECTAL CANCER METASTATIC
     Dosage: UNK
  5. 5-FLUOROURACIL [Suspect]
     Indication: COLORECTAL CANCER METASTATIC
     Dosage: UNK
     Route: 042
  6. 5-FLUOROURACIL [Suspect]
     Route: 040
  7. AVASTIN [Suspect]
     Indication: COLORECTAL CANCER METASTATIC
     Dosage: 386 MG, UNK
     Route: 042
     Dates: start: 20130617, end: 20130724

REACTIONS (1)
  - Wound complication [Recovered/Resolved]
